FAERS Safety Report 6872480-3 (Version None)
Quarter: 2010Q3

REPORT INFORMATION
  Report Type: 
  Country: None (occurrence: None)
  Receive Date: 20100723
  Receipt Date: 20081216
  Transmission Date: 20110219
  Serious: Yes (Death)
  Sender: FDA-Public Use
  Company Number: US-PFIZER INC-2008078880

PATIENT
  Sex: Male
  Weight: 72 kg

DRUGS (3)
  1. CHANTIX [Suspect]
     Indication: SMOKING CESSATION THERAPY
     Dosage: 1 MG, 2X/DAY
     Dates: start: 20080903, end: 20080915
  2. LEXAPRO [Concomitant]
     Dosage: UNK
     Route: 048
     Dates: start: 20080723, end: 20080915
  3. STRATTERA [Concomitant]
     Dosage: UNK
     Route: 048
     Dates: start: 20080625, end: 20080915

REACTIONS (1)
  - COMPLETED SUICIDE [None]
